FAERS Safety Report 6675195-X (Version None)
Quarter: 2010Q2

REPORT INFORMATION
  Report Type: 
  Country: None (occurrence: None)
  Receive Date: 20100409
  Receipt Date: 20100329
  Transmission Date: 20101027
  Serious: Yes (Other)
  Sender: FDA-Public Use
  Company Number: US-JNJFOC-20100100617

PATIENT
  Sex: Male

DRUGS (7)
  1. TYLENOL (CAPLET) [Suspect]
     Indication: ARTHRALGIA
     Route: 048
  2. TYLENOL (CAPLET) [Suspect]
     Indication: ARTHRITIS
     Route: 048
  3. TYLENOL PM [Suspect]
     Indication: DRUG USE FOR UNKNOWN INDICATION
  4. ASPIRIN [Concomitant]
  5. FISH OIL [Concomitant]
  6. VITAMIN D [Concomitant]
  7. ZETIA [Concomitant]

REACTIONS (2)
  - PRODUCT QUALITY ISSUE [None]
  - URINARY RETENTION [None]
